FAERS Safety Report 5334631-1 (Version None)
Quarter: 2007Q2

REPORT INFORMATION
  Report Type: 
  Country: None (occurrence: None)
  Receive Date: 20070525
  Receipt Date: 20070523
  Transmission Date: 20071010
  Serious: Yes (Hospitalization)
  Sender: FDA-Public Use
  Company Number: A0652626A

PATIENT
  Age: 66 Year
  Sex: Male

DRUGS (11)
  1. AVANDIA [Suspect]
     Dosage: 4MG TWICE PER DAY
     Route: 048
     Dates: end: 20070523
  2. GLIPIZIDE [Concomitant]
  3. TERAZOSIN HCL [Concomitant]
  4. ZOLPIDEM [Concomitant]
  5. FLOMAX [Concomitant]
  6. SIMVASTATIN [Concomitant]
  7. COREG [Concomitant]
  8. FUROSEMIDE [Concomitant]
  9. POTASSIUM ACETATE [Concomitant]
  10. METFORMIN HCL [Concomitant]
  11. AMBIEN [Concomitant]

REACTIONS (5)
  - CARDIAC DISORDER [None]
  - FALL [None]
  - INFECTION [None]
  - LOSS OF CONSCIOUSNESS [None]
  - SPINAL FRACTURE [None]
